FAERS Safety Report 10264456 (Version 1)
Quarter: 2014Q2

REPORT INFORMATION
  Report Type: Spontaneous
  Country: JP (occurrence: None)
  Receive Date: 20140624
  Receipt Date: 20140624
  Transmission Date: 20141212
  Serious: Yes (Hospitalization)
  Sender: FDA-Public Use
  Company Number: IMP_07700_2014

PATIENT
  Age: 24 Month
  Sex: Female

DRUGS (1)
  1. VALPROIC ACID (VALPROIC ACID) [Suspect]
     Indication: EPILEPSY

REACTIONS (5)
  - Automatism [None]
  - Cerebral atrophy [None]
  - Status epilepticus [None]
  - Anticonvulsant drug level below therapeutic [None]
  - Stupor [None]
